FAERS Safety Report 9179892 (Version 1)
Quarter: 2013Q1

REPORT INFORMATION
  Report Type: Spontaneous
  Country: US (occurrence: US)
  Receive Date: 20130321
  Receipt Date: 20130321
  Transmission Date: 20140127
  Serious: Yes (Other)
  Sender: FDA-Public Use
  Company Number: CHPA2013US004824

PATIENT
  Age: 62 Year
  Sex: Female

DRUGS (1)
  1. CONTROL STEP 3 7 MG [Suspect]
     Dosage: 21 MG, UNK
     Route: 062
     Dates: start: 2008

REACTIONS (6)
  - Lung neoplasm malignant [Not Recovered/Not Resolved]
  - Nicotine dependence [Unknown]
  - Treatment noncompliance [Unknown]
  - Overdose [Unknown]
  - Expired drug administered [Unknown]
  - Wrong technique in drug usage process [Unknown]
